FAERS Safety Report 7433931-9 (Version None)
Quarter: 2011Q2

REPORT INFORMATION
  Report Type: 
  Country: None (occurrence: None)
  Receive Date: 20110418
  Receipt Date: 20110401
  Transmission Date: 20111010
  Serious: Yes (Hospitalization)
  Sender: FDA-Public Use
  Company Number: 1000019988

PATIENT
  Age: 90 Year
  Sex: Female

DRUGS (11)
  1. PLAVIX [Suspect]
     Dosage: (75 MG), ORAL
     Route: 048
     Dates: start: 20010101, end: 20100713
  2. DIFFU K (POTASSIUM CHLORIDE) (POTASSIUM CHLORIDE) [Concomitant]
  3. DEBRIDAT (TRIMEBUTINE) (TRIMEBUTINE) [Concomitant]
  4. MODOPAR (BENSERAZIDE HYDROCHLORIDE, LEVODOPA) (BENSERAZIDE HYDROCHLORI [Concomitant]
  5. NEXIUM [Concomitant]
  6. LASILIX (FUROSEMIDE) (FUROSEMIDE) [Concomitant]
  7. TRANSIPEG (MACROGOL) (MACROGOL) [Concomitant]
  8. ESCITALOPRAM [Suspect]
     Dosage: 20 MG (20 MG, 1 IN 1 D), ORAL
     Route: 048
     Dates: start: 20050101, end: 20100713
  9. CLOZAPINE [Suspect]
     Dosage: ORAL
     Route: 048
     Dates: start: 20050101, end: 20100717
  10. SYMBICORT (BUDESONIDE, FORMOTEROL FUMARATE) (BUDESONIDE, FORMOTEROL FU [Concomitant]
  11. XANAX [Concomitant]

REACTIONS (2)
  - PRURITUS [None]
  - PURPURA [None]
